FAERS Safety Report 13443425 (Version 1)
Quarter: 2017Q2

REPORT INFORMATION
  Report Type: Spontaneous
  Country: CA (occurrence: CA)
  Receive Date: 20170414
  Receipt Date: 20170414
  Transmission Date: 20170830
  Serious: Yes (Congenital Anomaly, Other)
  Sender: FDA-Public Use
  Company Number: CA-APOTEX-2017AP010433

PATIENT
  Sex: Male

DRUGS (5)
  1. SYNTHROID [Concomitant]
     Active Substance: LEVOTHYROXINE SODIUM
     Indication: THYROID DISORDER
     Route: 064
     Dates: start: 2002
  2. PAXIL [Suspect]
     Active Substance: PAROXETINE HYDROCHLORIDE
     Indication: DEPRESSION
  3. APO-PAROXETINE [Suspect]
     Active Substance: PAROXETINE
     Indication: ANXIETY
     Route: 064
     Dates: start: 20040505, end: 20040812
  4. MATERNA [Concomitant]
     Active Substance: MINERALS\VITAMINS
     Route: 064
     Dates: start: 200310
  5. PAXIL [Suspect]
     Active Substance: PAROXETINE HYDROCHLORIDE
     Indication: ANXIETY
     Route: 064
     Dates: start: 20031026, end: 20031125

REACTIONS (25)
  - Spina bifida [Unknown]
  - Developmental hip dysplasia [Unknown]
  - Neural tube defect [Unknown]
  - Talipes [Unknown]
  - Congenital scoliosis [Unknown]
  - Aphasia [Unknown]
  - Craniosynostosis [Unknown]
  - Intervertebral disc disorder [Unknown]
  - Foetal exposure during pregnancy [Unknown]
  - Wheelchair user [Unknown]
  - Cryptorchism [Unknown]
  - Congenital anomaly [Unknown]
  - Abasia [Unknown]
  - Eyelid ptosis [Unknown]
  - Developmental delay [Unknown]
  - Hypospadias [Unknown]
  - Arnold-Chiari malformation [Unknown]
  - Genitalia external ambiguous [Unknown]
  - Atrioventricular septal defect [Unknown]
  - Rib deformity [Unknown]
  - Infertility male [Unknown]
  - Heart disease congenital [Unknown]
  - Myelodysplastic syndrome [Unknown]
  - Meningomyelocele [Unknown]
  - Anal atresia [Unknown]

NARRATIVE: CASE EVENT DATE: 20040622
